FAERS Safety Report 17391380 (Version 4)
Quarter: 2020Q2

REPORT INFORMATION
  Report Type: Report from Study
  Country: US (occurrence: US)
  Receive Date: 20200207
  Receipt Date: 20200521
  Transmission Date: 20200713
  Serious: Yes (Hospitalization)
  Sender: FDA-Public Use
  Company Number: US-ACTELION-A-NJ2019-188018

PATIENT
  Age: 56 Year
  Sex: Male
  Weight: 87.08 kg

DRUGS (14)
  1. VELETRI [Suspect]
     Active Substance: EPOPROSTENOL
     Dosage: 22 NG/KG, PER MIN
     Route: 042
  2. VELETRI [Suspect]
     Active Substance: EPOPROSTENOL
     Dosage: 6 NG/KG, PER MIN
     Route: 042
  3. VELETRI [Suspect]
     Active Substance: EPOPROSTENOL
     Dosage: 33 NG/KG, PER MIN
     Route: 042
  4. TADALAFIL. [Concomitant]
     Active Substance: TADALAFIL
  5. VELETRI [Suspect]
     Active Substance: EPOPROSTENOL
     Dosage: 15 NG/KG, PER MIN
     Route: 042
  6. VELETRI [Suspect]
     Active Substance: EPOPROSTENOL
     Indication: PULMONARY HYPERTENSION
     Dosage: 40 NG/KG, PER MIN
     Route: 042
  7. VELETRI [Suspect]
     Active Substance: EPOPROSTENOL
     Dosage: 11 NG/KG, PER MIN
     Route: 042
  8. VELETRI [Suspect]
     Active Substance: EPOPROSTENOL
     Dosage: 16 NG/KG, PER MIN
     Route: 042
  9. AMLODIPINE [Concomitant]
     Active Substance: AMLODIPINE BESYLATE
  10. SILDENAFIL CITRATE. [Concomitant]
     Active Substance: SILDENAFIL CITRATE
  11. VELETRI [Suspect]
     Active Substance: EPOPROSTENOL
     Dosage: 5 NG/KG, PER MIN
     Route: 042
  12. VELETRI [Suspect]
     Active Substance: EPOPROSTENOL
     Dosage: 8 NG/KG, PER MIN
     Route: 042
  13. VELETRI [Suspect]
     Active Substance: EPOPROSTENOL
     Dosage: 40 NG/KG, PER MIN
     Route: 042
  14. ALYQ [Concomitant]
     Active Substance: TADALAFIL

REACTIONS (34)
  - Pain in jaw [Not Recovered/Not Resolved]
  - Perennial allergy [Unknown]
  - Malaise [Unknown]
  - Chest pain [Unknown]
  - Weight decreased [Unknown]
  - Muscle spasms [Unknown]
  - Pain in extremity [Recovering/Resolving]
  - Device dislocation [Unknown]
  - Abdominal pain upper [Unknown]
  - Arthralgia [Unknown]
  - Headache [Unknown]
  - Pyrexia [Unknown]
  - Catheter site rash [Unknown]
  - Musculoskeletal pain [Unknown]
  - Back pain [Unknown]
  - Pain [Unknown]
  - Catheter site discharge [Unknown]
  - Influenza [Unknown]
  - Fatigue [Unknown]
  - Upper respiratory tract infection [Unknown]
  - Gait disturbance [Unknown]
  - Nausea [Unknown]
  - Diarrhoea [Unknown]
  - Dyspnoea [Unknown]
  - Product dose omission [Recovered/Resolved]
  - Cough [Unknown]
  - Depression [Recovering/Resolving]
  - Localised infection [Not Recovered/Not Resolved]
  - Dyspnoea exertional [Unknown]
  - Peripheral swelling [Unknown]
  - Nipple pain [Unknown]
  - Acquired immunodeficiency syndrome [Unknown]
  - Catheter management [Unknown]
  - Cellulitis [Unknown]

NARRATIVE: CASE EVENT DATE: 20190317
